FAERS Safety Report 9863938 (Version 1)
Quarter: 2014Q1

REPORT INFORMATION
  Report Type: Report from Study
  Country: CR (occurrence: CR)
  Receive Date: 20140203
  Receipt Date: 20140203
  Transmission Date: 20141002
  Serious: Yes (Hospitalization)
  Sender: FDA-Public Use
  Company Number: CR-ABBVIE-14P-039-1197296-00

PATIENT
  Sex: Female

DRUGS (1)
  1. HUMIRA [Suspect]
     Indication: CROHN^S DISEASE
     Route: 058
     Dates: start: 20120323

REACTIONS (3)
  - Gastrointestinal inflammation [Recovered/Resolved]
  - Intestinal perforation [Recovered/Resolved]
  - Oedema peripheral [Recovered/Resolved]
